FAERS Safety Report 9399261 (Version 1)
Quarter: 2013Q3

REPORT INFORMATION
  Report Type: Spontaneous
  Country: FR (occurrence: None)
  Receive Date: 20130709
  Receipt Date: 20130709
  Transmission Date: 20140515
  Serious: Yes (Hospitalization)
  Sender: FDA-Public Use
  Company Number: 2013FR0271

PATIENT
  Sex: Female

DRUGS (2)
  1. AMMONAPS [Suspect]
     Indication: ORNITHINE TRANSCARBAMOYLASE DEFICIENCY
     Dosage: (500 MG, 4 IN 1D)
  2. NA BENZOATE [Concomitant]

REACTIONS (3)
  - Gastroenteritis [None]
  - Drug administration error [None]
  - Weight decreased [None]
